FAERS Safety Report 23478839 (Version 1)
Quarter: 2024Q1

REPORT INFORMATION
  Report Type: Report from Study
  Country: US (occurrence: US)
  Receive Date: 20240205
  Receipt Date: 20240205
  Transmission Date: 20240410
  Serious: No
  Sender: FDA-Public Use
  Company Number: US-EXELIXIS-CABO-23068358

PATIENT
  Sex: Male

DRUGS (1)
  1. CABOMETYX [Suspect]
     Active Substance: CABOZANTINIB S-MALATE
     Indication: Renal cancer
     Dosage: 40 MG, QD
     Route: 048

REACTIONS (12)
  - Blood pressure increased [Not Recovered/Not Resolved]
  - Genital rash [Not Recovered/Not Resolved]
  - Dry skin [Unknown]
  - Fatigue [Unknown]
  - Dysphonia [Unknown]
  - Pruritus [Unknown]
  - Pain in extremity [Unknown]
  - Malaise [Unknown]
  - Oral discomfort [Unknown]
  - Snoring [Unknown]
  - Dry throat [Unknown]
  - Dry mouth [Unknown]
